FAERS Safety Report 18227244 (Version 4)
Quarter: 2021Q2

REPORT INFORMATION
  Report Type: Spontaneous
  Country: JP (occurrence: JP)
  Receive Date: 20200903
  Receipt Date: 20210526
  Transmission Date: 20210717
  Serious: Yes (Other)
  Sender: FDA-Public Use
  Company Number: JP-EISAI MEDICAL RESEARCH-EC-2019-067423

PATIENT
  Age: 85 Year
  Sex: Male

DRUGS (1)
  1. LENVATINIB [Suspect]
     Active Substance: LENVATINIB
     Indication: HEPATOCELLULAR CARCINOMA
     Route: 048
     Dates: start: 20191202, end: 20191204

REACTIONS (3)
  - Intra-abdominal haemorrhage [Unknown]
  - Tumour haemorrhage [Recovered/Resolved]
  - Liver carcinoma ruptured [Unknown]

NARRATIVE: CASE EVENT DATE: 201912
